FAERS Safety Report 11993770 (Version 1)
Quarter: 2016Q1

REPORT INFORMATION
  Report Type: Report from Study
  Country: CA (occurrence: CA)
  Receive Date: 20160203
  Receipt Date: 20160203
  Transmission Date: 20160526
  Serious: Yes (Other)
  Sender: FDA-Public Use
  Company Number: PHHY2014CA079899

PATIENT
  Age: 82 Year
  Sex: Female

DRUGS (1)
  1. TASIGNA [Suspect]
     Active Substance: NILOTINIB
     Indication: CHRONIC MYELOID LEUKAEMIA
     Dosage: 1 DF, ONE TABLET TWICE DAILY
     Route: 048
     Dates: start: 20140519

REACTIONS (7)
  - Blood iron decreased [Unknown]
  - Peripheral swelling [Unknown]
  - Fatigue [Unknown]
  - Pulmonary embolism [Unknown]
  - Immune system disorder [Unknown]
  - Therapeutic response decreased [Recovering/Resolving]
  - Malabsorption [Unknown]

NARRATIVE: CASE EVENT DATE: 201510
